FAERS Safety Report 6557854-2 (Version None)
Quarter: 2010Q1

REPORT INFORMATION
  Report Type: 
  Country: None (occurrence: None)
  Receive Date: 20100129
  Receipt Date: 20100118
  Transmission Date: 20100710
  Serious: Yes (Disabling)
  Sender: FDA-Public Use
  Company Number: FR-EISAI INC.-E7273-00073-SPO-FR

PATIENT
  Sex: Male

DRUGS (4)
  1. TARGRETIN [Suspect]
     Indication: T-CELL LYMPHOMA
     Route: 048
     Dates: start: 20080901
  2. TARGRETIN [Suspect]
     Dosage: UNKNOWN
     Route: 048
     Dates: start: 20070801, end: 20080901
  3. TAHOR [Concomitant]
     Dosage: UNKNOWN
  4. LEVOTHYROXINE SODIUM [Concomitant]
     Dosage: UNKNOWN

REACTIONS (1)
  - SUDDEN HEARING LOSS [None]
